FAERS Safety Report 7989223-2 (Version None)
Quarter: 2011Q4

REPORT INFORMATION
  Report Type: 
  Country: None (occurrence: None)
  Receive Date: 20111219
  Receipt Date: 20111208
  Transmission Date: 20120403
  Serious: Yes (Other)
  Sender: FDA-Public Use
  Company Number: SE-JNJFOC-20111204578

PATIENT
  Age: 58 Year
  Sex: Female

DRUGS (4)
  1. REMICADE [Suspect]
     Route: 042
     Dates: start: 20111024, end: 20111024
  2. PREDNISOLONE [Concomitant]
     Route: 065
  3. REMICADE [Suspect]
     Indication: RHEUMATOID ARTHRITIS
     Route: 042
     Dates: start: 20051118
  4. IBUPROFEN [Concomitant]
     Route: 065

REACTIONS (2)
  - SYSTEMIC LUPUS ERYTHEMATOSUS [None]
  - RASH MACULO-PAPULAR [None]
